FAERS Safety Report 7042758-1 (Version None)
Quarter: 2010Q4

REPORT INFORMATION
  Report Type: 
  Country: None (occurrence: None)
  Receive Date: 20101013
  Receipt Date: 20091021
  Transmission Date: 20110411
  Serious: No
  Sender: FDA-Public Use
  Company Number: US-ASTRAZENECA-2009SE21736

PATIENT
  Age: 61 Year
  Sex: Female
  Weight: 61.2 kg

DRUGS (1)
  1. SYMBICORT [Suspect]
     Dosage: 320 MG BID
     Route: 055

REACTIONS (4)
  - EAR DISCOMFORT [None]
  - HEADACHE [None]
  - NASAL DISCOMFORT [None]
  - SINUSITIS [None]
